FAERS Safety Report 16132730 (Version 2)
Quarter: 2019Q2

REPORT INFORMATION
  Report Type: Report from Study
  Country: None (occurrence: US)
  Receive Date: 20190329
  Receipt Date: 20190415
  Transmission Date: 20190711
  Serious: Yes (Other)
  Sender: FDA-Public Use
  Company Number: US-ABBVIE-19S-163-2720664-00

PATIENT
  Age: 66 Year
  Sex: Male
  Weight: 83.99 kg

DRUGS (6)
  1. TAMSULOSIN [Concomitant]
     Active Substance: TAMSULOSIN
     Indication: POLLAKIURIA
     Route: 048
     Dates: start: 20180911
  2. CARBIDOPA-LEVODOPA [Concomitant]
     Active Substance: CARBIDOPA\LEVODOPA
     Indication: PRODUCT USED FOR UNKNOWN INDICATION
     Route: 048
     Dates: start: 20181114
  3. DUOPA [Suspect]
     Active Substance: CARBIDOPA\LEVODOPA
     Indication: PARKINSON^S DISEASE
     Route: 050
     Dates: start: 20181120
  4. FINASTERIDE. [Concomitant]
     Active Substance: FINASTERIDE
     Indication: POLLAKIURIA
     Route: 048
     Dates: start: 20180911
  5. SEROQUEL [Concomitant]
     Active Substance: QUETIAPINE FUMARATE
     Indication: PROPHYLAXIS
     Route: 048
     Dates: start: 20180911
  6. SERTRALINE [Concomitant]
     Active Substance: SERTRALINE HYDROCHLORIDE
     Indication: DEPRESSION
     Route: 048
     Dates: start: 20181114

REACTIONS (5)
  - Urinary retention [Not Recovered/Not Resolved]
  - Loss of consciousness [Recovered/Resolved]
  - Skin laceration [Recovering/Resolving]
  - Urinary tract infection [Unknown]
  - Fall [Recovered/Resolved]

NARRATIVE: CASE EVENT DATE: 201903
